FAERS Safety Report 5871664-0 (Version None)
Quarter: 2008Q3

REPORT INFORMATION
  Report Type: 
  Country: None (occurrence: None)
  Receive Date: 20080905
  Receipt Date: 20080821
  Transmission Date: 20090109
  Serious: Yes (Hospitalization)
  Sender: FDA-Public Use
  Company Number: ES-ELI_LILLY_AND_COMPANY-ES200808004479

PATIENT
  Age: 63 Year
  Sex: Female

DRUGS (8)
  1. FORTEO [Suspect]
     Indication: OSTEOPOROSIS
     Dosage: 20 UG, UNKNOWN
     Route: 058
     Dates: start: 20080304
  2. REGULATEN [Concomitant]
     Dosage: UNK, UNKNOWN
  3. ZOCOR [Concomitant]
     Dosage: UNK, UNKNOWN
  4. TERMALGIN [Concomitant]
     Dosage: UNK, UNKNOWN
     Route: 065
  5. TRAMADOL HCL [Concomitant]
     Dosage: UNK, UNKNOWN
  6. SODIUM CHLORIDE [Concomitant]
     Indication: SINUSITIS
     Dosage: UNK, UNKNOWN
     Route: 065
  7. VITAMIN D [Concomitant]
     Dosage: UNK, UNKNOWN
     Route: 065
  8. CALCIUM [Concomitant]
     Dosage: UNK, UNKNOWN
     Route: 065

REACTIONS (5)
  - ANAEMIA [None]
  - CYTOMEGALOVIRUS INFECTION [None]
  - DYSURIA [None]
  - IMMUNE SYSTEM DISORDER [None]
  - PYREXIA [None]
